FAERS Safety Report 7163784-8 (Version None)
Quarter: 2010Q4

REPORT INFORMATION
  Report Type: 
  Country: None (occurrence: None)
  Receive Date: 20101215
  Receipt Date: 20101202
  Transmission Date: 20110411
  Serious: Yes (Other)
  Sender: FDA-Public Use
  Company Number: DE-AMGEN-DEUSP2010007915

PATIENT

DRUGS (1)
  1. ENBREL [Suspect]
     Indication: PSORIASIS
     Dosage: UNK

REACTIONS (3)
  - AMYOTROPHIC LATERAL SCLEROSIS [None]
  - MOTOR NEURONE DISEASE [None]
  - NERVOUS SYSTEM DISORDER [None]
